FAERS Safety Report 7984170-4 (Version None)
Quarter: 2011Q4

REPORT INFORMATION
  Report Type: 
  Country: None (occurrence: None)
  Receive Date: 20111214
  Receipt Date: 20111205
  Transmission Date: 20120403
  Serious: Yes (Hospitalization, Other)
  Sender: FDA-Public Use
  Company Number: KAD201112-000093

PATIENT
  Age: 38 Year
  Sex: Female

DRUGS (3)
  1. RIBAVIRIN [Suspect]
     Indication: HEPATITIS C
     Dosage: 1000 MG/DAY, ORAL
     Route: 048
     Dates: start: 20040201
  2. PEGINTERFERON ALFA-2A [Suspect]
     Indication: HEPATITIS C
     Dosage: 180 UG/WEEK
     Dates: start: 20040201
  3. PROPRANOLOL [Suspect]

REACTIONS (4)
  - ANTINUCLEAR ANTIBODY POSITIVE [None]
  - HASHITOXICOSIS [None]
  - IMPAIRED INSULIN SECRETION [None]
  - DIABETIC KETOACIDOSIS [None]
